FAERS Safety Report 4383756-6 (Version None)
Quarter: 2004Q2

REPORT INFORMATION
  Report Type: 
  Country: None (occurrence: None)
  Receive Date: 20040608
  Receipt Date: 20030710
  Transmission Date: 20050107
  Serious: Yes (Other)
  Sender: FDA-Public Use
  Company Number: 200312367BCC

PATIENT
  Age: 31 Year
  Sex: Female
  Weight: 63.5036 kg

DRUGS (2)
  1. ALEVE [Suspect]
     Indication: ARTHRALGIA
     Dosage: 440 MG, QD, ORAL
     Route: 048
     Dates: start: 20030601, end: 20030708
  2. NOVOLIN 70/30 [Concomitant]

REACTIONS (1)
  - BLOOD GLUCOSE INCREASED [None]
